FAERS Safety Report 6959577-4 (Version None)
Quarter: 2010Q3

REPORT INFORMATION
  Report Type: 
  Country: None (occurrence: None)
  Receive Date: 20100830
  Receipt Date: 20100830
  Transmission Date: 20110219
  Serious: Yes (Other)
  Sender: FDA-Public Use
  Company Number: 1022556-2010-00056

PATIENT
  Age: 42 Year
  Sex: Female
  Weight: 58.0604 kg

DRUGS (6)
  1. ICY HOT POWER GEL 1.75 OZ [Suspect]
     Indication: MYALGIA
     Dosage: TOPICAL, ONCE
     Route: 061
  2. ALEVE (CAPLET) [Concomitant]
  3. ZOLOFT [Concomitant]
  4. CYCLOBENZPRINE [Concomitant]
  5. NADOLOL [Concomitant]
  6. SAVELLA [Concomitant]

REACTIONS (4)
  - APPLICATION SITE ERYTHEMA [None]
  - PAIN [None]
  - SKIN BURNING SENSATION [None]
  - SKIN EXFOLIATION [None]
